FAERS Safety Report 23262397 (Version 1)
Quarter: 2023Q4

REPORT INFORMATION
  Report Type: Spontaneous
  Country: GB (occurrence: GB)
  Receive Date: 20231205
  Receipt Date: 20231205
  Transmission Date: 20240109
  Serious: Yes (Hospitalization, Other)
  Sender: FDA-Public Use
  Company Number: GB-009507513-2009GBR000559

PATIENT
  Sex: Male

DRUGS (1)
  1. KEYTRUDA [Suspect]
     Active Substance: PEMBROLIZUMAB
     Indication: Malignant melanoma
     Dosage: UNK
     Route: 065

REACTIONS (49)
  - Urethral operation [Recovered/Resolved]
  - Rash macular [Recovered/Resolved]
  - Mass [Recovered/Resolved]
  - Decreased immune responsiveness [Unknown]
  - Skin discolouration [Unknown]
  - Fungal skin infection [Recovered/Resolved]
  - Nail ridging [Not Recovered/Not Resolved]
  - Onychomycosis [Not Recovered/Not Resolved]
  - Communication disorder [Not Recovered/Not Resolved]
  - Skin mass [Unknown]
  - Disease recurrence [Unknown]
  - Weight decreased [Unknown]
  - Toxicity to various agents [Unknown]
  - Gastrointestinal disorder [Unknown]
  - Pruritus [Unknown]
  - Acne [Unknown]
  - Ephelides [Unknown]
  - Oral hyperaesthesia [Unknown]
  - Dry mouth [Unknown]
  - Sneezing [Unknown]
  - Constipation [Unknown]
  - Diarrhoea [Unknown]
  - Overweight [Unknown]
  - Hypertension [Unknown]
  - Hypotension [Unknown]
  - Balance disorder [Unknown]
  - Cataract operation [Recovered/Resolved]
  - Cortisol decreased [Unknown]
  - Coordination abnormal [Unknown]
  - Muscle tightness [Unknown]
  - Surgery [Recovered/Resolved]
  - Onychoclasis [Unknown]
  - Flatulence [Unknown]
  - Agitation [Unknown]
  - Memory impairment [Unknown]
  - Personality change [Unknown]
  - Posture abnormal [Unknown]
  - Ill-defined disorder [Unknown]
  - Muscular weakness [Unknown]
  - Rash [Unknown]
  - Vitiligo [Unknown]
  - Myalgia [Unknown]
  - Nail pitting [Unknown]
  - Nail discolouration [Unknown]
  - Pruritus [Unknown]
  - Cataract operation [Recovered/Resolved]
  - Contusion [Unknown]
  - Surgery [Unknown]
  - Skin irritation [Unknown]

NARRATIVE: CASE EVENT DATE: 20200101
